FAERS Safety Report 9364222 (Version 1)
Quarter: 2013Q2

REPORT INFORMATION
  Report Type: Spontaneous
  Country: FR (occurrence: FR)
  Receive Date: 20130624
  Receipt Date: 20130624
  Transmission Date: 20140414
  Serious: Yes (Other)
  Sender: FDA-Public Use
  Company Number: FR-PFIZER INC-2013086162

PATIENT
  Age: 69 Year
  Sex: Female
  Weight: 36 kg

DRUGS (6)
  1. AROMASINE [Suspect]
     Indication: BREAST CANCER METASTATIC
     Dosage: 25 MG, 1X/DAY
     Dates: start: 20130124
  2. AFINITOR [Suspect]
     Indication: BREAST CANCER METASTATIC
     Dosage: 10 MG, 1X/DAY
     Route: 048
     Dates: start: 20130124
  3. FLUOXETINE [Concomitant]
     Indication: DYSTHYMIC DISORDER
     Dosage: 20 MG, 1X/DAY
     Route: 048
     Dates: start: 1993
  4. OMEPRAZOLE [Concomitant]
     Indication: GASTROOESOPHAGEAL REFLUX DISEASE
     Dosage: 20 MG, 1X/DAY
     Route: 048
     Dates: start: 2007
  5. OMEPRAZOLE [Concomitant]
     Indication: CHEMOTHERAPY
  6. LEVOTHYROX [Concomitant]
     Dosage: 100 UG, 1X/DAY
     Route: 048
     Dates: start: 2008, end: 2008

REACTIONS (5)
  - Cataract [Not Recovered/Not Resolved]
  - Bone pain [Recovered/Resolved]
  - Inflammation [Recovered/Resolved]
  - Oedema peripheral [Recovered/Resolved]
  - Rash [Recovered/Resolved]
